FAERS Safety Report 6889937-1 (Version None)
Quarter: 2010Q3

REPORT INFORMATION
  Report Type: 
  Country: None (occurrence: None)
  Receive Date: 20100730
  Receipt Date: 20081107
  Transmission Date: 20110219
  Serious: No
  Sender: FDA-Public Use
  Company Number: US-PFIZER INC-2008025814

PATIENT
  Sex: Male

DRUGS (4)
  1. LIPITOR [Suspect]
  2. ASCORBIC ACID [Concomitant]
  3. VITAMIN E [Concomitant]
  4. VITAMIN D [Concomitant]

REACTIONS (3)
  - BLOOD PRESSURE INCREASED [None]
  - FEELING ABNORMAL [None]
  - PALPITATIONS [None]
